FAERS Safety Report 7308502-5 (Version None)
Quarter: 2011Q1

REPORT INFORMATION
  Report Type: 
  Country: None (occurrence: None)
  Receive Date: 20110223
  Receipt Date: 20101213
  Transmission Date: 20110831
  Serious: Yes (Life-Threatening, Disabling, Other)
  Sender: FDA-Public Use
  Company Number: US-BAYER-201033890NA

PATIENT
  Sex: Female
  Weight: 85.261 kg

DRUGS (1)
  1. MIRENA [Suspect]
     Indication: CONTRACEPTION
     Dosage: 20 ?G (DAILY DOSE), , INTRA-UTERINE
     Route: 015
     Dates: start: 20070101, end: 20100913

REACTIONS (33)
  - DEPRESSION [None]
  - OSTEOARTHRITIS [None]
  - HYPOAESTHESIA [None]
  - ACNE [None]
  - PAIN [None]
  - PELVIC PAIN [None]
  - ASTHENIA [None]
  - SUICIDAL IDEATION [None]
  - MOOD SWINGS [None]
  - FLUID RETENTION [None]
  - PALPITATIONS [None]
  - BACTERIAL INFECTION [None]
  - CARTILAGE INJURY [None]
  - WEIGHT INCREASED [None]
  - ARTHRALGIA [None]
  - PARAESTHESIA [None]
  - DIZZINESS [None]
  - OEDEMA PERIPHERAL [None]
  - FUNGAL INFECTION [None]
  - HYPERSOMNIA [None]
  - ERYTHEMA [None]
  - SCAR [None]
  - AMENORRHOEA [None]
  - GAIT DISTURBANCE [None]
  - FEELING HOT [None]
  - BREAST TENDERNESS [None]
  - FATIGUE [None]
  - SOCIAL AVOIDANT BEHAVIOUR [None]
  - DECREASED ACTIVITY [None]
  - ANXIETY [None]
  - CHEST PAIN [None]
  - ARTHRITIS [None]
  - ARTHROPATHY [None]
